FAERS Safety Report 10565965 (Version 1)
Quarter: 2014Q4

REPORT INFORMATION
  Report Type: Spontaneous
  Country: US (occurrence: None)
  Receive Date: 20141104
  Receipt Date: 20141104
  Transmission Date: 20150529
  Serious: No
  Sender: FDA-Public Use
  Company Number: None

PATIENT
  Sex: Male
  Weight: 29.1 kg

DRUGS (1)
  1. METHYLPHENIDATE 27 MG WATSON [Suspect]
     Active Substance: METHYLPHENIDATE
     Indication: ATTENTION DEFICIT/HYPERACTIVITY DISORDER
     Route: 048
     Dates: start: 201408, end: 201409

REACTIONS (4)
  - Disturbance in attention [None]
  - Drug ineffective [None]
  - Product substitution issue [None]
  - Impulsive behaviour [None]
